FAERS Safety Report 24815635 (Version 1)
Quarter: 2025Q1

REPORT INFORMATION
  Report Type: Spontaneous
  Country: US (occurrence: US)
  Receive Date: 20250107
  Receipt Date: 20250107
  Transmission Date: 20250408
  Serious: No
  Sender: BAYER HEALTHCARE PHARMACEUTICALS INC.
  Company Number: US-BAYER-2025A001570

PATIENT
  Age: 66 Year
  Sex: Male

DRUGS (2)
  1. STIVARGA [Suspect]
     Active Substance: REGORAFENIB MONOHYDRATE
     Indication: Hepatic cancer
  2. CABOMETYX [Suspect]
     Active Substance: CABOZANTINIB S-MALATE
     Indication: Hepatic cancer
     Dosage: 60 MG, QD
     Route: 048
     Dates: start: 202406

REACTIONS (3)
  - Pain in extremity [None]
  - Rash [None]
  - Stomatitis [None]
